FAERS Safety Report 20505330 (Version 4)
Quarter: 2022Q4

REPORT INFORMATION
  Report Type: Spontaneous
  Country: JP (occurrence: JP)
  Receive Date: 20220223
  Receipt Date: 20221003
  Transmission Date: 20230113
  Serious: Yes (Death, Other)
  Sender: FDA-Public Use
  Company Number: JP-AMGEN-JPNSP2022030098

PATIENT
  Age: 66 Year
  Sex: Male
  Weight: 89 kg

DRUGS (8)
  1. REPATHA [Suspect]
     Active Substance: EVOLOCUMAB
     Indication: Hypercholesterolaemia
     Dosage: 420 MILLIGRAM, Q4WK
     Route: 058
     Dates: start: 20180620, end: 20220215
  2. FUROSEMIDE [Concomitant]
     Active Substance: FUROSEMIDE
     Indication: Angina pectoris
     Dosage: 10 MILLIGRAM, QD
     Dates: start: 20171225
  3. SPIRONOLACTONE [Concomitant]
     Active Substance: SPIRONOLACTONE
     Indication: Angina pectoris
     Dosage: 12.5 MILLIGRAM, QD
     Dates: start: 20171225
  4. BISOPROLOL [Concomitant]
     Active Substance: BISOPROLOL
     Indication: Left ventricular failure
     Dosage: 2.5 MILLIGRAM, QD
     Dates: start: 20171225
  5. ENALAPRIL [Concomitant]
     Active Substance: ENALAPRIL
     Indication: Left ventricular failure
     Dosage: 2.5 MILLIGRAM, QD
     Dates: start: 20171225
  6. ASPIRIN [Concomitant]
     Active Substance: ASPIRIN
     Indication: Left ventricular failure
     Dosage: 1 DOSAGE FORM, QD AFTER BREAKFAST
  7. PRASUGREL HYDROCHLORIDE [Concomitant]
     Active Substance: PRASUGREL HYDROCHLORIDE
     Indication: Left ventricular failure
     Dosage: 1 DOSAGE FORM, QD AFTER BREAKFAST
  8. LIVALO [Concomitant]
     Active Substance: PITAVASTATIN CALCIUM
     Indication: Dyslipidaemia
     Dosage: 1 DOSAGE FORM, QD AFTER BREAKFAST

REACTIONS (2)
  - Myocardial infarction [Fatal]
  - Accidental exposure to product [Unknown]

NARRATIVE: CASE EVENT DATE: 20220215
